FAERS Safety Report 13739789 (Version 1)
Quarter: 2017Q3

REPORT INFORMATION
  Report Type: Spontaneous
  Country: FR (occurrence: FR)
  Receive Date: 20170710
  Receipt Date: 20170710
  Transmission Date: 20171127
  Serious: Yes (Hospitalization, Other)
  Sender: FDA-Public Use
  Company Number: PHHY2009FR19540

PATIENT
  Age: 76 Year
  Sex: Male

DRUGS (1)
  1. CARTEOL LP (NVO) [Suspect]
     Active Substance: CARTEOLOL HYDROCHLORIDE
     Indication: INTRAOCULAR PRESSURE INCREASED
     Dosage: 1 DROP IN THE MORNING IN EACH EYE
     Route: 047
     Dates: start: 2007

REACTIONS (11)
  - Respiratory disorder [Unknown]
  - Alopecia [Unknown]
  - Palpitations [Unknown]
  - Nightmare [Unknown]
  - Sleep apnoea syndrome [Unknown]
  - Psoriasis [Unknown]
  - Fatigue [Unknown]
  - Umbilical hernia repair [Unknown]
  - Abdominal distension [Unknown]
  - Dry mouth [Unknown]
  - Cardiovascular disorder [Unknown]

NARRATIVE: CASE EVENT DATE: 200904
